FAERS Safety Report 15164512 (Version 1)
Quarter: 2018Q3

REPORT INFORMATION
  Report Type: Spontaneous
  Country: US (occurrence: US)
  Receive Date: 20180621
  Receipt Date: 20180621
  Transmission Date: 20181010
  Serious: No
  Sender: FDA-Public Use
  Company Number: None

PATIENT
  Sex: Female

DRUGS (1)
  1. METHOTREXATE 2.5MG TABLETS [Suspect]
     Active Substance: METHOTREXATE
     Indication: CHORIORETINITIS
     Dosage: UNKNOWN DATES OF USE
     Route: 048

REACTIONS (1)
  - Somnolence [None]
